FAERS Safety Report 13470345 (Version 3)
Quarter: 2019Q4

REPORT INFORMATION
  Report Type: Spontaneous
  Country: US (occurrence: US)
  Receive Date: 20170423
  Receipt Date: 20191223
  Transmission Date: 20200122
  Serious: Yes (Hospitalization)
  Sender: FDA-Public Use
  Company Number: US-JNJFOC-20170421587

PATIENT
  Age: 65 Year
  Sex: Male

DRUGS (2)
  1. HEPARIN [Suspect]
     Active Substance: HEPARIN SODIUM
  2. XARELTO [Suspect]
     Active Substance: RIVAROXABAN
     Indication: THROMBOSIS
     Route: 048
     Dates: start: 20161126, end: 20161208

REACTIONS (1)
  - Gastric haemorrhage [Recovered/Resolved]

NARRATIVE: CASE EVENT DATE: 201611
